FAERS Safety Report 26076494 (Version 1)
Quarter: 2025Q4

REPORT INFORMATION
  Report Type: Spontaneous
  Country: CN (occurrence: CN)
  Receive Date: 20251121
  Receipt Date: 20251121
  Transmission Date: 20260118
  Serious: Yes (Other)
  Sender: PFIZER
  Company Number: CN-PFIZER INC-PV202500135810

PATIENT
  Age: 48 Year
  Sex: Female
  Weight: 84 kg

DRUGS (1)
  1. CYTARABINE [Suspect]
     Active Substance: CYTARABINE
     Indication: Acute myeloid leukaemia
     Dosage: 4 G, 2X/DAY (EVERY 12 HOURS)
     Route: 041
     Dates: start: 20251112, end: 20251114

REACTIONS (4)
  - Pyrexia [Recovered/Resolved]
  - Nausea [Recovered/Resolved]
  - Vomiting [Recovered/Resolved]
  - Chest discomfort [Recovered/Resolved]

NARRATIVE: CASE EVENT DATE: 20251112
